FAERS Safety Report 20403727 (Version 1)
Quarter: 2022Q1

REPORT INFORMATION
  Report Type: Spontaneous
  Country: IT (occurrence: IT)
  Receive Date: 20220131
  Receipt Date: 20220131
  Transmission Date: 20220423
  Serious: Yes (Hospitalization)
  Sender: FDA-Public Use
  Company Number: None

PATIENT
  Age: 93 Year
  Sex: Female

DRUGS (8)
  1. AMARYL [Suspect]
     Active Substance: GLIMEPIRIDE
     Route: 048
  2. INTRAFER [DEXTRIFERRON] [Concomitant]
  3. LASIX [Concomitant]
     Active Substance: FUROSEMIDE
  4. ALLOPURINOL [Concomitant]
     Active Substance: ALLOPURINOL
  5. DIOSMIN [Concomitant]
     Active Substance: DIOSMIN
  6. CLARITROMICINA ACCORD [Concomitant]
  7. PARNAPARIN SODIUM [Concomitant]
     Active Substance: PARNAPARIN SODIUM
  8. FOLIC ACID [Concomitant]
     Active Substance: FOLIC ACID

REACTIONS (1)
  - Hypoglycaemia [Recovering/Resolving]

NARRATIVE: CASE EVENT DATE: 20210207
